FAERS Safety Report 9141777 (Version 2)
Quarter: 2013Q2

REPORT INFORMATION
  Report Type: Spontaneous
  Country: US (occurrence: US)
  Receive Date: 20130305
  Receipt Date: 20130404
  Transmission Date: 20140414
  Serious: No
  Sender: FDA-Public Use
  Company Number: US-AMGEN-USASP2013013578

PATIENT
  Age: 62 Year
  Sex: Male
  Weight: 102.4 kg

DRUGS (2)
  1. ENBREL [Suspect]
     Indication: RHEUMATOID ARTHRITIS
     Dosage: 50 MG, QWK
     Route: 058
     Dates: start: 20130211
  2. PERCOCET                           /00446701/ [Concomitant]
     Indication: PAIN
     Dosage: UNK
     Route: 048
     Dates: start: 20130218, end: 20130225

REACTIONS (5)
  - Hypoaesthesia [Not Recovered/Not Resolved]
  - Muscular weakness [Not Recovered/Not Resolved]
  - Pain in extremity [Not Recovered/Not Resolved]
  - Burning sensation [Recovered/Resolved]
  - Paraesthesia [Not Recovered/Not Resolved]
